FAERS Safety Report 16034473 (Version 2)
Quarter: 2019Q1

REPORT INFORMATION
  Report Type: Spontaneous
  Country: US (occurrence: US)
  Receive Date: 20190305
  Receipt Date: 20190329
  Transmission Date: 20190418
  Serious: No
  Sender: FDA-Public Use
  Company Number: US-PFIZER INC-2019003434

PATIENT
  Age: 63 Year
  Sex: Female
  Weight: 57.15 kg

DRUGS (2)
  1. XELJANZ [Suspect]
     Active Substance: TOFACITINIB CITRATE
     Indication: IRON DEFICIENCY
     Dosage: 10 MG, 1X/DAY (THEN ONCE A DAY FOR THE REST OF THE TIME)
     Route: 048
     Dates: start: 201901, end: 2019
  2. XELJANZ [Suspect]
     Active Substance: TOFACITINIB CITRATE
     Indication: COLITIS ULCERATIVE
     Dosage: 10 MG, 2X/DAY (FOR THE FIRST 8 WEEKS)
     Route: 048
     Dates: start: 201901

REACTIONS (5)
  - Haemorrhoidal haemorrhage [Unknown]
  - Haemorrhoids [Unknown]
  - Condition aggravated [Unknown]
  - Drug ineffective [Not Recovered/Not Resolved]
  - Anorectal discomfort [Unknown]

NARRATIVE: CASE EVENT DATE: 2019
